FAERS Safety Report 8286294-3 (Version None)
Quarter: 2012Q1

REPORT INFORMATION
  Report Type: 
  Country: None (occurrence: None)
  Receive Date: 20120314
  Receipt Date: 20101004
  Transmission Date: 20120608
  Serious: No
  Sender: FDA-Public Use
  Company Number: PHHY2010US63345

PATIENT
  Age: 31 Year
  Sex: Male
  Weight: 125.2 kg

DRUGS (4)
  1. FANAPT [Suspect]
     Indication: SCHIZOPHRENIA
     Dosage: UNK, BID, ORAL
     Route: 048
     Dates: start: 20100827, end: 20100902
  2. TRAZODONE (TRAZODONE), 100 MG 08/27/2010 TO ONGOING [Concomitant]
  3. HALDOL (HALOPERIDOL DECANOATE), 5 MG 02/17/2009 TO ONGOING [Concomitant]
  4. COGENTIN (BENZATROPINE MESILATE), 1 MG 02/17/2009 TO ONGOING [Concomitant]

REACTIONS (1)
  - HAEMATURIA [None]
